FAERS Safety Report 10574802 (Version 1)
Quarter: 2014Q4

REPORT INFORMATION
  Report Type: Report from Study
  Country: US (occurrence: US)
  Receive Date: 20141110
  Receipt Date: 20141110
  Transmission Date: 20150529
  Serious: Yes (Other)
  Sender: FDA-Public Use
  Company Number: US-GILEAD-2014-0121995

PATIENT
  Age: 87 Year
  Sex: Female

DRUGS (1)
  1. RANOLAZINE [Suspect]
     Active Substance: RANOLAZINE
     Indication: ANGINA PECTORIS
     Dosage: 500 MG, UNK
     Route: 065

REACTIONS (4)
  - Dementia [Unknown]
  - Cardiac disorder [Unknown]
  - Unevaluable event [Unknown]
  - Memory impairment [Unknown]
